FAERS Safety Report 24000434 (Version 1)
Quarter: 2024Q2

REPORT INFORMATION
  Report Type: Spontaneous
  Country: SE (occurrence: SE)
  Receive Date: 20240621
  Receipt Date: 20240621
  Transmission Date: 20240715
  Serious: Yes (Life-Threatening, Hospitalization, Disabling)
  Sender: FDA-Public Use
  Company Number: None

PATIENT
  Age: 62 Year
  Sex: Female
  Weight: 52 kg

DRUGS (11)
  1. CELEBRA [Suspect]
     Active Substance: CELECOXIB
     Indication: Neck surgery
     Dosage: 100 MILLIGRAM, Q6H (1 X 4 DOSE: FIRST DOSE)
     Route: 048
     Dates: start: 20230529, end: 20230717
  2. GABAPENTIN [Suspect]
     Active Substance: GABAPENTIN
     Indication: Neck surgery
     Dosage: 300 MILLIGRAM, Q6H (1 X 4 DOSE: FIRST DOSE)
     Route: 048
     Dates: start: 20230529, end: 20230717
  3. LERCANIDIPIN ZENTIVA [Concomitant]
     Dosage: 10 MILLIGRAM, QD (1 X 1)
     Route: 048
     Dates: start: 20190101
  4. IMOVANE [Concomitant]
     Active Substance: ZOPICLONE
     Dosage: UNK UNK, PRN (AS NECESSARY)
     Route: 048
     Dates: start: 20190101
  5. PROPIOMAZINE [Concomitant]
     Active Substance: PROPIOMAZINE
     Dosage: 1-2 AS NECESSARY
     Route: 048
     Dates: start: 20190101
  6. ASPIRIN [Concomitant]
     Active Substance: ASPIRIN
     Dosage: 75 MILLIGRAM, QD (1X1)
     Route: 048
     Dates: start: 20190101
  7. KETOBEMIDONE HYDROCHLORIDE [Concomitant]
     Active Substance: KETOBEMIDONE HYDROCHLORIDE
     Dosage: UNK UNK, PRN (AS NECESSARY)
     Route: 048
     Dates: start: 20230529, end: 20230717
  8. AMLODIPINE BESYLATE [Concomitant]
     Active Substance: AMLODIPINE BESYLATE
     Dosage: 5 MILLIGRAM, QD (1X1)
     Route: 048
     Dates: start: 20190101
  9. ACETAMINOPHEN [Concomitant]
     Active Substance: ACETAMINOPHEN
     Dosage: UNK UNK, PRN (AS NECESSARY)
     Route: 048
     Dates: start: 20190101
  10. BISOPROLOL [Concomitant]
     Active Substance: BISOPROLOL\BISOPROLOL FUMARATE
     Dosage: 5 MILLIGRAM, BID (1 X 2)
     Route: 048
     Dates: start: 20190101
  11. LOSARTAN POTASSIUM [Concomitant]
     Active Substance: LOSARTAN POTASSIUM
     Dosage: 50 MILLIGRAM, QD (1X1)
     Route: 048
     Dates: start: 20190101

REACTIONS (15)
  - Femur fracture [Unknown]
  - Myocardial infarction [Unknown]
  - Hypoaesthesia [Unknown]
  - Fluid retention [Unknown]
  - Gallbladder rupture [Recovering/Resolving]
  - Clavicle fracture [Unknown]
  - Blood pressure abnormal [Unknown]
  - Craniofacial fracture [Unknown]
  - Urinary retention [Unknown]
  - Fall [Unknown]
  - Dyspnoea [Unknown]
  - Peroneal nerve palsy [Not Recovered/Not Resolved]
  - Weight decreased [Unknown]
  - Cerebrovascular accident [Unknown]
  - Renal failure [Unknown]

NARRATIVE: CASE EVENT DATE: 20230101
